FAERS Safety Report 7447850-5 (Version None)
Quarter: 2011Q2

REPORT INFORMATION
  Report Type: 
  Country: None (occurrence: None)
  Receive Date: 20110429
  Receipt Date: 20110211
  Transmission Date: 20111010
  Serious: No
  Sender: FDA-Public Use
  Company Number: US-ASTRAZENECA-2010SE05755

PATIENT
  Sex: Female

DRUGS (2)
  1. NEXIUM [Suspect]
     Route: 048
  2. PROTONIX [Concomitant]

REACTIONS (3)
  - ADVERSE EVENT [None]
  - ABDOMINAL DISTENSION [None]
  - INCORRECT DOSE ADMINISTERED [None]
